FAERS Safety Report 8320753-X (Version None)
Quarter: 2012Q2

REPORT INFORMATION
  Report Type: 
  Country: None (occurrence: None)
  Receive Date: 20120430
  Receipt Date: 20120423
  Transmission Date: 20120825
  Serious: Yes (Death)
  Sender: FDA-Public Use
  Company Number: PHHY2012US035361

PATIENT
  Age: 87 Year
  Sex: Female

DRUGS (8)
  1. ZOLPIDEM [Suspect]
  2. LEVOTHYROXINE SODIUM [Suspect]
  3. ACETAMINOPHEN W/ PROPOXYPHENE HCL [Suspect]
  4. NITROGLYCERIN [Suspect]
  5. COLCHICINE [Suspect]
  6. METOPROLOL TARTRATE [Suspect]
  7. HYDRALAZINE HCL [Suspect]
  8. ALPRAZOLAM [Suspect]

REACTIONS (1)
  - COMPLETED SUICIDE [None]
